FAERS Safety Report 17525720 (Version 2)
Quarter: 2020Q1

REPORT INFORMATION
  Report Type: Spontaneous
  Country: US (occurrence: US)
  Receive Date: 20200310
  Receipt Date: 20200323
  Transmission Date: 20200409
  Serious: Yes (Hospitalization, Other)
  Sender: FDA-Public Use
  Company Number: US-GILEAD-2020-0454278

PATIENT
  Age: 68 Year
  Sex: Male
  Weight: 74.6 kg

DRUGS (4)
  1. VITAMIN D [COLECALCIFEROL] [Concomitant]
     Active Substance: CHOLECALCIFEROL
  2. YESCARTA [Suspect]
     Active Substance: AXICABTAGENE CILOLEUCEL
     Indication: DIFFUSE LARGE B-CELL LYMPHOMA
     Dosage: 68 ML, ONCE
     Route: 042
     Dates: start: 20200108, end: 20200108
  3. FAMOTIDINE. [Concomitant]
     Active Substance: FAMOTIDINE
  4. METOPROLOL. [Concomitant]
     Active Substance: METOPROLOL

REACTIONS (2)
  - Neurotoxicity [Recovered/Resolved]
  - Cytokine release syndrome [Recovered/Resolved]

NARRATIVE: CASE EVENT DATE: 20200109
